FAERS Safety Report 10932294 (Version 1)
Quarter: 2015Q1

REPORT INFORMATION
  Report Type: Spontaneous
  Country: US (occurrence: None)
  Receive Date: 20150319
  Receipt Date: 20150319
  Transmission Date: 20150721
  Serious: Yes (Hospitalization, Disabling)
  Sender: FDA-Public Use
  Company Number: None

PATIENT
  Sex: Female
  Weight: 58.97 kg

DRUGS (8)
  1. VIT. D [Concomitant]
  2. XANAX [Concomitant]
     Active Substance: ALPRAZOLAM
  3. SOMA [Concomitant]
     Active Substance: CARISOPRODOL
  4. NAPROXEN. [Concomitant]
     Active Substance: NAPROXEN
  5. CALCIUM [Concomitant]
     Active Substance: CALCIUM
  6. FOSAMAX [Suspect]
     Active Substance: ALENDRONATE SODIUM
     Indication: OSTEOARTHRITIS
     Dosage: BYMOUTH, THEN LIQUID
     Dates: start: 2000, end: 2006
  7. MOTRINE [Concomitant]
  8. FOSAMAX [Suspect]
     Active Substance: ALENDRONATE SODIUM
     Indication: OSTEOPOROSIS
     Dosage: BYMOUTH, THEN LIQUID
     Dates: start: 2000, end: 2006

REACTIONS (11)
  - Fall [None]
  - Arthralgia [None]
  - Toothache [None]
  - Hip fracture [None]
  - Tooth loss [None]
  - Loose tooth [None]
  - Bone graft [None]
  - Pain [None]
  - Groin pain [None]
  - Fear [None]
  - No therapeutic response [None]

NARRATIVE: CASE EVENT DATE: 20140130
